FAERS Safety Report 4741362-5 (Version None)
Quarter: 2005Q3

REPORT INFORMATION
  Report Type: 
  Country: None (occurrence: None)
  Receive Date: 20050803
  Receipt Date: 20050128
  Transmission Date: 20060218
  Serious: Yes (Hospitalization)
  Sender: FDA-Public Use
  Company Number: 2005-01-2224

PATIENT
  Age: 58 Year
  Sex: Male
  Weight: 137 kg

DRUGS (1)
  1. INTRON A [Suspect]
     Indication: MALIGNANT MELANOMA
     Dosage: 40 MIU IV INTRAVENOUS
     Route: 042
     Dates: start: 20050127, end: 20050127

REACTIONS (1)
  - CEREBROVASCULAR ACCIDENT [None]
